FAERS Safety Report 15655885 (Version 1)
Quarter: 2018Q4

REPORT INFORMATION
  Report Type: Spontaneous
  Country: US (occurrence: US)
  Receive Date: 20181115
  Receipt Date: 20181115
  Transmission Date: 20190205
  Serious: Yes (Life-Threatening)
  Sender: FDA-Public Use
  Company Number: None

PATIENT
  Age: 69 Year
  Sex: Male

DRUGS (2)
  1. CETUXIMAB. [Suspect]
     Active Substance: CETUXIMAB
     Indication: LARYNGEAL CANCER
     Dates: start: 20181026, end: 20181026
  2. CETUXIMAB. [Suspect]
     Active Substance: CETUXIMAB
     Indication: SQUAMOUS CELL CARCINOMA
     Dates: start: 20181026, end: 20181026

REACTIONS (3)
  - Anaphylactic reaction [None]
  - Loss of consciousness [None]
  - Cardiac arrest [None]

NARRATIVE: CASE EVENT DATE: 20181028
